FAERS Safety Report 26047137 (Version 1)
Quarter: 2025Q4

REPORT INFORMATION
  Report Type: Spontaneous
  Country: EU (occurrence: EU)
  Receive Date: 20251114
  Receipt Date: 20251114
  Transmission Date: 20260117
  Serious: Yes (Life-Threatening, Other)
  Sender: SANDOZ
  Company Number: EU-AFSSAPS-PB2025001350

PATIENT
  Age: 58 Year
  Sex: Male

DRUGS (6)
  1. ALPRAZOLAM [Suspect]
     Active Substance: ALPRAZOLAM
     Indication: Suicide attempt
     Dosage: 15 MILLIGRAM IN 1 TOTAL
     Route: 048
     Dates: start: 20250821
  2. BROMAZEPAM [Suspect]
     Active Substance: BROMAZEPAM
     Indication: Suicide attempt
     Dosage: 360 MILLIGRAM IN 1 TOTAL
     Route: 048
     Dates: start: 20250821
  3. MELATONIN [Suspect]
     Active Substance: MELATONIN
     Indication: Suicide attempt
     Dosage: 15 TABLETS
     Route: 065
  4. LORAZEPAM [Suspect]
     Active Substance: LORAZEPAM
     Indication: Suicide attempt
     Dosage: 150 MILLIGRAM IN 1 TOTAL
     Route: 048
     Dates: start: 20250821
  5. TAMSULOSIN [Suspect]
     Active Substance: TAMSULOSIN
     Indication: Suicide attempt
     Dosage: 3.2 MILLIGRAM IN 1 TOTAL
     Route: 048
     Dates: start: 20250821
  6. ZOPICLONE [Suspect]
     Active Substance: ZOPICLONE
     Indication: Suicide attempt
     Dosage: 420 MILLIGRAM IN 1 TOTAL
     Route: 048
     Dates: start: 20250821

REACTIONS (6)
  - Poisoning deliberate [Recovered/Resolved]
  - Depressed level of consciousness [Recovered/Resolved]
  - Suicide attempt [Unknown]
  - Ischaemic stroke [Unknown]
  - Pneumonia aspiration [Unknown]
  - Intentional overdose [Unknown]

NARRATIVE: CASE EVENT DATE: 20250801
